FAERS Safety Report 5893459-4 (Version None)
Quarter: 2008Q3

REPORT INFORMATION
  Report Type: 
  Country: None (occurrence: None)
  Receive Date: 20080923
  Receipt Date: 20080912
  Transmission Date: 20090109
  Serious: Yes (Other)
  Sender: FDA-Public Use
  Company Number: PL-ROCHE-586587

PATIENT
  Sex: Female

DRUGS (1)
  1. BONIVA [Suspect]
     Indication: DRUG USE FOR UNKNOWN INDICATION
     Dosage: STRENGTH: 3 MG/3 ML
     Route: 042
     Dates: start: 20080101

REACTIONS (2)
  - BONE DISORDER [None]
  - FEMUR FRACTURE [None]
